FAERS Safety Report 9371351 (Version 1)
Quarter: 2013Q2

REPORT INFORMATION
  Report Type: Spontaneous
  Country: US (occurrence: US)
  Receive Date: 20130627
  Receipt Date: 20130627
  Transmission Date: 20140414
  Serious: No
  Sender: FDA-Public Use
  Company Number: US-BIOGENIDEC-2013BI057215

PATIENT
  Sex: Female

DRUGS (2)
  1. TYSABRI [Suspect]
     Indication: MULTIPLE SCLEROSIS
     Route: 042
     Dates: start: 20111130, end: 20111228
  2. BETASERON [Concomitant]

REACTIONS (2)
  - Blindness unilateral [Not Recovered/Not Resolved]
  - Nuclear magnetic resonance imaging abnormal [Unknown]
